FAERS Safety Report 10962571 (Version 1)
Quarter: 2015Q1

REPORT INFORMATION
  Report Type: Report from Study
  Country: BR (occurrence: BR)
  Receive Date: 20150327
  Receipt Date: 20150327
  Transmission Date: 20150721
  Serious: Yes (Other)
  Sender: FDA-Public Use
  Company Number: BR-ABBVIE-15K-020-1364841-00

PATIENT
  Sex: Female
  Weight: 67 kg

DRUGS (15)
  1. CHONDROITIN SULFATE W/GLUCOSAMINE [Concomitant]
     Indication: ARTHROPATHY
  2. METICORTEN [Concomitant]
     Active Substance: PREDNISONE
     Indication: ARTHRITIS
     Route: 048
     Dates: start: 1989
  3. METHOTREXATE [Concomitant]
     Active Substance: METHOTREXATE
     Indication: ARTHRITIS
     Route: 048
     Dates: start: 1989
  4. BENICAR HCT [Concomitant]
     Active Substance: HYDROCHLOROTHIAZIDE\OLMESARTAN MEDOXOMIL
     Indication: BLOOD PRESSURE ABNORMAL
     Route: 048
     Dates: start: 2000
  5. PRAZOL [Concomitant]
     Indication: GASTRIC DISORDER
     Route: 048
     Dates: start: 20140814
  6. HUMIRA [Suspect]
     Active Substance: ADALIMUMAB
     Indication: RHEUMATOID ARTHRITIS
     Route: 058
     Dates: start: 20101010
  7. SERTRALINE [Concomitant]
     Active Substance: SERTRALINE HYDROCHLORIDE
     Indication: DEPRESSION
     Route: 048
     Dates: start: 2013
  8. VITAMIN D [Concomitant]
     Active Substance: CHOLECALCIFEROL
     Indication: VITAMIN D DEFICIENCY
     Dosage: 1 TABLET DAILY, TWICE A YEAR DURING UNSPECIFIED PERIOD
     Route: 048
  9. FOLIC ACID. [Concomitant]
     Active Substance: FOLIC ACID
     Indication: ANAEMIA PROPHYLAXIS
     Route: 048
     Dates: start: 1995
  10. CHONDROITIN SULFATE W/GLUCOSAMINE [Concomitant]
     Indication: ARTHROPATHY
     Dosage: 1 SACHET DISSOLVELD IN HALF GLASS OF WATER
     Route: 048
  11. PHARMATON [Concomitant]
     Active Substance: MINERALS\VITAMINS
     Indication: FATIGUE
     Route: 048
  12. OMEGA 3 [Concomitant]
     Active Substance: OMEGA-3 FATTY ACIDS
     Indication: SJOGREN^S SYNDROME
     Route: 048
     Dates: start: 1995
  13. ACETYLSALICYLIC ACID [Concomitant]
     Active Substance: ASPIRIN
     Indication: CARDIAC DISORDER
     Route: 048
     Dates: start: 2007
  14. DOMPERIDONE [Concomitant]
     Active Substance: DOMPERIDONE
     Indication: GASTRIC DISORDER
     Route: 048
     Dates: start: 2013
  15. DOMPERIDONE [Concomitant]
     Active Substance: DOMPERIDONE
     Indication: GASTROINTESTINAL DISORDER

REACTIONS (9)
  - Pain in extremity [Not Recovered/Not Resolved]
  - Neuroma [Not Recovered/Not Resolved]
  - Anaemia [Not Recovered/Not Resolved]
  - Cardiac disorder [Unknown]
  - Arthralgia [Not Recovered/Not Resolved]
  - Gastrointestinal disorder [Unknown]
  - Blood cholesterol abnormal [Unknown]
  - Joint swelling [Not Recovered/Not Resolved]
  - Depression [Unknown]
